FAERS Safety Report 12846834 (Version 2)
Quarter: 2016Q4

REPORT INFORMATION
  Report Type: Spontaneous
  Country: BR (occurrence: BR)
  Receive Date: 20161014
  Receipt Date: 20161130
  Transmission Date: 20170207
  Serious: Yes (Hospitalization)
  Sender: FDA-Public Use
  Company Number: BR-ELI_LILLY_AND_COMPANY-BR201608007771

PATIENT
  Age: 0 Day

DRUGS (2)
  1. HUMULIN N [Suspect]
     Active Substance: INSULIN HUMAN
     Dosage: UNK, UNKNOWN
     Route: 063
  2. HUMULIN N [Suspect]
     Active Substance: INSULIN HUMAN
     Indication: BLOOD GLUCOSE INCREASED
     Dosage: UNK, UNKNOWN
     Route: 064

REACTIONS (4)
  - Exposure during breast feeding [Recovered/Resolved]
  - Dyspnoea [Recovered/Resolved]
  - Foetal exposure during pregnancy [Recovered/Resolved]
  - Anaemia [Unknown]

NARRATIVE: CASE EVENT DATE: 20040522
